FAERS Safety Report 20621335 (Version 1)
Quarter: 2022Q1

REPORT INFORMATION
  Report Type: Spontaneous
  Country: US (occurrence: US)
  Receive Date: 20220322
  Receipt Date: 20220322
  Transmission Date: 20220423
  Serious: No
  Sender: FDA-Public Use
  Company Number: US-PFIZER INC-202200427182

PATIENT
  Age: 3 Year
  Sex: Female

DRUGS (1)
  1. EUCRISA [Suspect]
     Active Substance: CRISABOROLE
     Indication: Eczema eyelids
     Dosage: UNK, 2X/DAY

REACTIONS (2)
  - Burning sensation [Unknown]
  - Screaming [Unknown]

NARRATIVE: CASE EVENT DATE: 20220315
